FAERS Safety Report 4923907-5 (Version None)
Quarter: 2006Q1

REPORT INFORMATION
  Report Type: 
  Country: None (occurrence: None)
  Receive Date: 20060227
  Receipt Date: 20051027
  Transmission Date: 20060701
  Serious: Yes (Hospitalization, Other)
  Sender: FDA-Public Use
  Company Number: US-MERCK-0510USA09918

PATIENT
  Age: 42 Year
  Sex: Female
  Weight: 155 kg

DRUGS (2)
  1. VIOXX [Suspect]
     Indication: ARTHRITIS
     Route: 048
     Dates: start: 20030228, end: 20040601
  2. VIOXX [Suspect]
     Route: 048
     Dates: start: 20040601, end: 20040808

REACTIONS (28)
  - ACUTE PRERENAL FAILURE [None]
  - ANAEMIA [None]
  - ANXIETY [None]
  - ARTERIAL OCCLUSIVE DISEASE [None]
  - ASTHMA [None]
  - ATTENTION DEFICIT/HYPERACTIVITY DISORDER [None]
  - CARDIAC FAILURE CONGESTIVE [None]
  - CARDIOVASCULAR DISORDER [None]
  - CEREBROVASCULAR ACCIDENT [None]
  - CONDITION AGGRAVATED [None]
  - CORONARY ARTERY DISEASE [None]
  - DEPRESSION [None]
  - DYSPNOEA [None]
  - FALL [None]
  - FLUID IMBALANCE [None]
  - HYPERTENSION [None]
  - ISCHAEMIC STROKE [None]
  - JOINT SPRAIN [None]
  - METABOLIC SYNDROME [None]
  - NEUROGENIC BLADDER [None]
  - OEDEMA [None]
  - RENAL FAILURE CHRONIC [None]
  - SEASONAL ALLERGY [None]
  - SWELLING [None]
  - URINARY RETENTION [None]
  - URINARY TRACT INFECTION [None]
  - URINE OUTPUT DECREASED [None]
  - WEIGHT INCREASED [None]
